APPROVED DRUG PRODUCT: DIABINESE
Active Ingredient: CHLORPROPAMIDE
Strength: 250MG
Dosage Form/Route: TABLET;ORAL
Application: N011641 | Product #006
Applicant: PFIZER LABORATORIES DIV PFIZER INC
Approved: Approved Prior to Jan 1, 1982 | RLD: Yes | RS: No | Type: DISCN